FAERS Safety Report 7685661-6 (Version None)
Quarter: 2011Q3

REPORT INFORMATION
  Report Type: 
  Country: None (occurrence: None)
  Receive Date: 20110816
  Receipt Date: 20110302
  Transmission Date: 20111222
  Serious: No
  Sender: FDA-Public Use
  Company Number: US-BAYER-2011-015382

PATIENT
  Sex: Female

DRUGS (1)
  1. MIRENA [Suspect]
     Dosage: 20 ?G, QD
     Dates: start: 20110211

REACTIONS (3)
  - MENSTRUAL DISORDER [None]
  - BREAST FEEDING [None]
  - MENORRHAGIA [None]
